FAERS Safety Report 7422097-7 (Version None)
Quarter: 2011Q2

REPORT INFORMATION
  Report Type: 
  Country: None (occurrence: None)
  Receive Date: 20110418
  Receipt Date: 20110412
  Transmission Date: 20111010
  Serious: Yes (Hospitalization, Disabling, Other)
  Sender: FDA-Public Use
  Company Number: US-MERCK-0902USA01600

PATIENT
  Age: 60 Year
  Sex: Female

DRUGS (3)
  1. FOSAMAX [Suspect]
     Indication: OSTEOPOROSIS
     Route: 048
     Dates: start: 19990201, end: 20080110
  2. FOSAMAX [Suspect]
     Route: 048
     Dates: start: 19960101, end: 20080201
  3. PRILOSEC [Concomitant]
     Route: 065
     Dates: start: 19900101, end: 20110101

REACTIONS (18)
  - BONE DENSITY ABNORMAL [None]
  - OSTEONECROSIS OF JAW [None]
  - FEMUR FRACTURE [None]
  - FRACTURE DELAYED UNION [None]
  - SUBCUTANEOUS ABSCESS [None]
  - PAIN [None]
  - HIP FRACTURE [None]
  - HYPERTENSION [None]
  - ABSCESS [None]
  - HYPOTENSION [None]
  - OSTEOMYELITIS [None]
  - ADVERSE DRUG REACTION [None]
  - BLOOD CHOLESTEROL INCREASED [None]
  - FALL [None]
  - RHEUMATOID ARTHRITIS [None]
  - JAW DISORDER [None]
  - LIPIDS INCREASED [None]
  - PULPITIS DENTAL [None]
